FAERS Safety Report 9539652 (Version 1)
Quarter: 2013Q3

REPORT INFORMATION
  Report Type: Spontaneous
  Country: BR (occurrence: BR)
  Receive Date: 20130920
  Receipt Date: 20130920
  Transmission Date: 20140515
  Serious: Yes (Other)
  Sender: FDA-Public Use
  Company Number: PHHY2013BR104837

PATIENT
  Age: 9 Year
  Sex: Male

DRUGS (1)
  1. RITALIN LA [Suspect]
     Dosage: UNK UKN, UNK

REACTIONS (2)
  - Suicide attempt [Unknown]
  - Aggression [Unknown]
